FAERS Safety Report 9299132 (Version 1)
Quarter: 2013Q2

REPORT INFORMATION
  Report Type: Other
  Country: AU (occurrence: AU)
  Receive Date: 20130520
  Receipt Date: 20130520
  Transmission Date: 20140414
  Serious: Yes (Death)
  Sender: FDA-Public Use
  Company Number: AU-MYLANLABS-2013S1010159

PATIENT
  Age: 83 Year
  Sex: Male

DRUGS (3)
  1. FEBUXOSTAT [Suspect]
     Route: 065
  2. DIGOXIN [Suspect]
     Route: 065
  3. PHENPROCOUMON [Suspect]
     Route: 065

REACTIONS (2)
  - Acute hepatic failure [Fatal]
  - Toxicity to various agents [Unknown]
